FAERS Safety Report 9718163 (Version 1)
Quarter: 2013Q4

REPORT INFORMATION
  Report Type: Not Available
  Country: US (occurrence: US)
  Receive Date: 20131125
  Receipt Date: 20131125
  Transmission Date: 20140711
  Serious: No
  Sender: FDA-Public Use
  Company Number: US-VIVUS-2013V1000528

PATIENT
  Age: 37 Year
  Sex: Female
  Weight: 129.39 kg

DRUGS (5)
  1. QSYMIA 3.75MG/23MG [Suspect]
     Indication: WEIGHT DECREASED
     Route: 048
     Dates: start: 20130706
  2. NIFEDICAL [Concomitant]
     Indication: HYPERTENSION
     Route: 048
  3. ATENOLOL [Concomitant]
     Indication: HYPERTENSION
     Route: 048
  4. SIMVASTATIN [Concomitant]
     Indication: DYSLIPIDAEMIA
     Route: 048
  5. CYMBALTA [Concomitant]
     Indication: ANXIETY
     Dosage: STARTED 4-5 MONTHS AGO
     Route: 048

REACTIONS (1)
  - Insomnia [Recovered/Resolved]
